FAERS Safety Report 21054748 (Version 1)
Quarter: 2022Q3

REPORT INFORMATION
  Report Type: Spontaneous
  Country: US (occurrence: US)
  Receive Date: 20220707
  Receipt Date: 20220707
  Transmission Date: 20221027
  Serious: No
  Sender: FDA-Public Use
  Company Number: US-PFIZER INC-202200935253

PATIENT
  Age: 61 Year
  Sex: Female
  Weight: 83.46 kg

DRUGS (1)
  1. XELJANZ [Suspect]
     Active Substance: TOFACITINIB CITRATE
     Indication: Rheumatoid arthritis
     Dosage: 5 MG, 2X/DAY (5MG ONE TABLET TWICE DAILY BY MOUTH)
     Route: 048
     Dates: start: 2016

REACTIONS (4)
  - Intentional product misuse [Unknown]
  - Anaemia [Unknown]
  - Ulcer [Unknown]
  - Hiatus hernia [Unknown]
